FAERS Safety Report 20942004 (Version 1)
Quarter: 2022Q2

REPORT INFORMATION
  Report Type: Spontaneous
  Country: US (occurrence: US)
  Receive Date: 20220610
  Receipt Date: 20220610
  Transmission Date: 20220721
  Serious: Yes (Other)
  Sender: FDA-Public Use
  Company Number: US-Shilpa Medicare Limited-SML-US-2022-00626

PATIENT
  Age: 21 Month
  Sex: Male

DRUGS (8)
  1. IRINOTECAN [Suspect]
     Active Substance: IRINOTECAN
     Indication: Clear cell sarcoma of the kidney
  2. IRINOTECAN [Suspect]
     Active Substance: IRINOTECAN
     Dosage: DECREASED
  3. TEMOZOLOMIDE [Suspect]
     Active Substance: TEMOZOLOMIDE
     Indication: Clear cell sarcoma of the kidney
  4. IFOSFAMIDE [Suspect]
     Active Substance: IFOSFAMIDE
     Indication: Clear cell sarcoma of the kidney
     Dosage: 6 G/M2 CYCLE FOR 2 CYCLES
  5. CARBOPLATIN [Suspect]
     Active Substance: CARBOPLATIN
     Indication: Clear cell sarcoma of the kidney
     Dosage: CYCLE FOR 2 CYCLES
  6. ETOPOSIDE [Suspect]
     Active Substance: ETOPOSIDE
     Indication: Clear cell sarcoma of the kidney
     Dosage: CYCLE FOR 2 CYCLES
  7. VINCRISTINE [Suspect]
     Active Substance: VINCRISTINE
     Indication: Clear cell sarcoma of the kidney
  8. CEFIXIME [Concomitant]
     Active Substance: CEFIXIME
     Indication: Prophylaxis against diarrhoea

REACTIONS (4)
  - Diarrhoea [Unknown]
  - Haematochezia [Unknown]
  - Vomiting [Unknown]
  - Pneumatosis intestinalis [Unknown]
